FAERS Safety Report 7419775-2 (Version None)
Quarter: 2011Q2

REPORT INFORMATION
  Report Type: 
  Country: None (occurrence: None)
  Receive Date: 20110418
  Receipt Date: 20110404
  Transmission Date: 20111010
  Serious: Yes (Hospitalization)
  Sender: FDA-Public Use
  Company Number: CA-JNJFOC-20100705548

PATIENT
  Sex: Male
  Weight: 95.2 kg

DRUGS (4)
  1. BENADRYL [Concomitant]
     Indication: PREMEDICATION
  2. REMICADE [Suspect]
     Indication: CROHN'S DISEASE
     Route: 042
  3. SOLU-CORTEF [Concomitant]
     Indication: PREMEDICATION
     Route: 042
  4. ACETAMINOPHEN [Concomitant]
     Indication: PREMEDICATION

REACTIONS (1)
  - PROSTATITIS [None]
